FAERS Safety Report 16181137 (Version 1)
Quarter: 2019Q2

REPORT INFORMATION
  Report Type: Spontaneous
  Country: US (occurrence: US)
  Receive Date: 20190410
  Receipt Date: 20190410
  Transmission Date: 20190711
  Serious: Yes (Other)
  Sender: FDA-Public Use
  Company Number: PHHY2019US079838

PATIENT
  Age: 57 Year
  Sex: Male

DRUGS (1)
  1. CEFTRIAXONE. [Suspect]
     Active Substance: CEFTRIAXONE
     Indication: SEPTIC SHOCK
     Dosage: UNK
     Route: 065

REACTIONS (7)
  - Rash [Unknown]
  - Cholestasis [Unknown]
  - Pyrexia [Unknown]
  - Eosinophilia [Unknown]
  - Idiosyncratic drug reaction [Unknown]
  - Alcoholic liver disease [Unknown]
  - Cholelithiasis [Unknown]
